APPROVED DRUG PRODUCT: DARVON-N
Active Ingredient: PROPOXYPHENE NAPSYLATE
Strength: 100MG
Dosage Form/Route: TABLET;ORAL
Application: N016862 | Product #002
Applicant: XANODYNE PHARMACEUTICS INC
Approved: Approved Prior to Jan 1, 1982 | RLD: No | RS: No | Type: DISCN